FAERS Safety Report 8449041-8 (Version None)
Quarter: 2012Q2

REPORT INFORMATION
  Report Type: 
  Country: None (occurrence: None)
  Receive Date: 20120619
  Receipt Date: 20120603
  Transmission Date: 20120825
  Serious: Yes (Hospitalization, Disabling, Other)
  Sender: FDA-Public Use
  Company Number: CL-PFIZER INC-CL-WYE-H17422510

PATIENT
  Sex: Male

DRUGS (3)
  1. INSULIN [Concomitant]
     Route: 065
  2. AMLODIPINE [Concomitant]
     Dosage: UNK
     Route: 065
     Dates: end: 20100901
  3. TEMSIROLIMUS [Suspect]
     Indication: METASTATIC RENAL CELL CARCINOMA
     Dosage: UNKNOWN
     Route: 065
     Dates: start: 20100701, end: 20100901

REACTIONS (5)
  - OEDEMA PERIPHERAL [None]
  - ANAEMIA [None]
  - SWELLING FACE [None]
  - PROTEIN TOTAL DECREASED [None]
  - OEDEMA GENITAL [None]
